FAERS Safety Report 5387303-1 (Version None)
Quarter: 2007Q3

REPORT INFORMATION
  Report Type: 
  Country: None (occurrence: None)
  Receive Date: 20070716
  Receipt Date: 20070711
  Transmission Date: 20080115
  Serious: Yes (Life-Threatening, Hospitalization)
  Sender: FDA-Public Use
  Company Number: PHEH2007US05624

PATIENT
  Age: 63 Year
  Sex: Female

DRUGS (9)
  1. AVALIDE [Concomitant]
     Indication: HYPERTENSION
     Dates: start: 20000101
  2. ATENOLOL [Concomitant]
     Indication: HYPERTENSION
     Dates: start: 20000101
  3. LIPITOR [Concomitant]
     Indication: HYPERLIPIDAEMIA
     Dates: start: 20000101
  4. POTASSIUM CHLORIDE [Concomitant]
     Dates: start: 20000101
  5. SYNTHROID [Concomitant]
     Indication: HYPOTHYROIDISM
     Dates: start: 20000101
  6. NORCO [Concomitant]
     Indication: BACK PAIN
     Dates: start: 20050101
  7. VALTREX [Concomitant]
  8. FENTANYL TRANSDERMAL SYSTEM [Concomitant]
     Indication: BACK PAIN
     Dates: start: 20000101
  9. ZELNORM [Suspect]
     Indication: IRRITABLE BOWEL SYNDROME
     Dosage: 6 MG, BID
     Route: 048
     Dates: start: 20061001, end: 20070330

REACTIONS (7)
  - APHASIA [None]
  - ASTHENIA [None]
  - DISORIENTATION [None]
  - DIZZINESS [None]
  - DYSPNOEA [None]
  - MIGRAINE [None]
  - SPEECH DISORDER [None]
